FAERS Safety Report 14874477 (Version 1)
Quarter: 2018Q2

REPORT INFORMATION
  Report Type: Spontaneous
  Country: US (occurrence: US)
  Receive Date: 20180424
  Receipt Date: 20180424
  Transmission Date: 20180711
  Serious: Yes (Hospitalization, Other)
  Sender: FDA-Public Use
  Company Number: None

PATIENT
  Age: 4 Year
  Sex: Female
  Weight: 21.6 kg

DRUGS (1)
  1. KYMRIAH [Suspect]
     Active Substance: TISAGENLECLEUCEL
     Indication: ACUTE LYMPHOCYTIC LEUKAEMIA RECURRENT
     Route: 042
     Dates: start: 20180409, end: 20180409

REACTIONS (7)
  - Headache [None]
  - Tachycardia [None]
  - Hypotension [None]
  - Chills [None]
  - Blood pressure decreased [None]
  - Nausea [None]
  - Body temperature increased [None]

NARRATIVE: CASE EVENT DATE: 20180412
